FAERS Safety Report 14807814 (Version 2)
Quarter: 2018Q2

REPORT INFORMATION
  Report Type: Spontaneous
  Country: US (occurrence: US)
  Receive Date: 20180425
  Receipt Date: 20180501
  Transmission Date: 20180711
  Serious: Yes (Other)
  Sender: FDA-Public Use
  Company Number: US-PFIZER INC-2018163668

PATIENT
  Age: 77 Year
  Sex: Female
  Weight: 60.33 kg

DRUGS (2)
  1. PRISTIQ EXTENDED-RELEASE [Suspect]
     Active Substance: DESVENLAFAXINE SUCCINATE
     Indication: DEPRESSION
     Dosage: UNK
     Dates: end: 201712
  2. PRISTIQ EXTENDED-RELEASE [Suspect]
     Active Substance: DESVENLAFAXINE SUCCINATE
     Dosage: 50 MG, DAILY (TRIES TO TAKE IT EARLY IN THE MORNING)
     Route: 048
     Dates: start: 201801

REACTIONS (13)
  - Constipation [Unknown]
  - Diarrhoea [Recovered/Resolved]
  - Haematochezia [Unknown]
  - Emotional disorder [Unknown]
  - General physical health deterioration [Unknown]
  - Confusional state [Unknown]
  - Oral herpes [Recovered/Resolved]
  - Crying [Unknown]
  - Vomiting [Recovered/Resolved]
  - Fall [Unknown]
  - Weight decreased [Recovered/Resolved]
  - Influenza [Recovered/Resolved]
  - Affect lability [Unknown]

NARRATIVE: CASE EVENT DATE: 20161124
